FAERS Safety Report 7184516-3 (Version None)
Quarter: 2010Q4

REPORT INFORMATION
  Report Type: 
  Country: None (occurrence: None)
  Receive Date: 20101222
  Receipt Date: 20101216
  Transmission Date: 20110411
  Serious: Yes (Life-Threatening, Hospitalization)
  Sender: FDA-Public Use
  Company Number: AU-ELI_LILLY_AND_COMPANY-AU201011003941

PATIENT
  Sex: Female

DRUGS (4)
  1. BYETTA [Suspect]
     Indication: TYPE 2 DIABETES MELLITUS
     Dosage: 5 UG, 2/D
     Dates: start: 20100202, end: 20100212
  2. METFORMIN [Concomitant]
     Indication: TYPE 2 DIABETES MELLITUS
     Dosage: 1 G, 2/D
     Dates: start: 20000101, end: 20100215
  3. ZANIDIP [Concomitant]
  4. KARVEZIDE [Concomitant]
     Indication: BLOOD PRESSURE

REACTIONS (3)
  - DEHYDRATION [None]
  - HYPERTENSION [None]
  - RENAL FAILURE ACUTE [None]
